FAERS Safety Report 19685170 (Version 1)
Quarter: 2021Q3

REPORT INFORMATION
  Report Type: Spontaneous
  Country: US (occurrence: US)
  Receive Date: 20210810
  Receipt Date: 20210810
  Transmission Date: 20211014
  Serious: No
  Sender: FDA-Public Use
  Company Number: None

PATIENT
  Age: 57 Year
  Sex: Female
  Weight: 60.78 kg

DRUGS (3)
  1. RINVOQ [Suspect]
     Active Substance: UPADACITINIB
     Indication: RHEUMATOID ARTHRITIS
     Route: 048
     Dates: start: 202104
  2. RINVOQ [Suspect]
     Active Substance: UPADACITINIB
     Indication: SENILE OSTEOPOROSIS
  3. RINVOQ [Suspect]
     Active Substance: UPADACITINIB
     Indication: SENILE OSTEOPOROSIS
     Route: 048
     Dates: start: 202104

REACTIONS (2)
  - Upper respiratory tract infection [None]
  - Therapy interrupted [None]
